FAERS Safety Report 8556527-4 (Version None)
Quarter: 2012Q2

REPORT INFORMATION
  Report Type: 
  Country: None (occurrence: None)
  Receive Date: 20120418
  Receipt Date: 20110309
  Transmission Date: 20120825
  Serious: Yes (Hospitalization)
  Sender: FDA-Public Use
  Company Number: PHHY2011US20042

PATIENT
  Sex: Male

DRUGS (2)
  1. DIOVAN [Suspect]
  2. VALTURNA [Suspect]
     Indication: HYPERTENSION
     Dosage: 300 MG ALIS AND 320 MG VALS, ORAL
     Route: 048
     Dates: start: 20110203, end: 20110217

REACTIONS (1)
  - BLOOD PRESSURE INCREASED [None]
